FAERS Safety Report 9956178 (Version 1)
Quarter: 2014Q1

REPORT INFORMATION
  Report Type: Spontaneous
  Country: CA (occurrence: CA)
  Receive Date: 20140304
  Receipt Date: 20140304
  Transmission Date: 20141002
  Serious: Yes (Hospitalization, Other)
  Sender: FDA-Public Use
  Company Number: CA-RB-063938-14

PATIENT
  Age: 0 None
  Sex: Male

DRUGS (8)
  1. SUBOXONE TABLET [Suspect]
     Indication: DRUG DEPENDENCE
     Route: 064
     Dates: start: 20130815, end: 20131009
  2. SUBOXONE TABLET [Suspect]
     Route: 064
     Dates: start: 20131209, end: 20140109
  3. SUBOXONE TABLET [Suspect]
     Route: 063
     Dates: start: 20140109
  4. SUBUTEX [Suspect]
     Indication: DRUG DEPENDENCE
     Route: 064
     Dates: start: 20131009, end: 20131209
  5. CIPRALEX [Concomitant]
     Indication: ANXIETY
     Route: 064
     Dates: start: 201310, end: 20140109
  6. CIPRALEX [Concomitant]
     Route: 063
     Dates: start: 20140109
  7. WELLBUTRIN XL [Concomitant]
     Indication: DEPRESSED MOOD
     Route: 064
     Dates: start: 20131126, end: 20140109
  8. WELLBUTRIN XL [Concomitant]
     Route: 063
     Dates: start: 20140109

REACTIONS (5)
  - Foetal exposure during pregnancy [Recovered/Resolved]
  - Drug withdrawal syndrome neonatal [Recovered/Resolved]
  - Jaundice neonatal [Recovered/Resolved]
  - Apgar score low [Recovered/Resolved]
  - Exposure during breast feeding [Not Recovered/Not Resolved]
